FAERS Safety Report 8343510-7 (Version None)
Quarter: 2012Q2

REPORT INFORMATION
  Report Type: 
  Country: None (occurrence: None)
  Receive Date: 20120508
  Receipt Date: 20120504
  Transmission Date: 20120825
  Serious: Yes (Other)
  Sender: FDA-Public Use
  Company Number: PHHY2012IN037006

PATIENT
  Age: 67 Year
  Sex: Male

DRUGS (4)
  1. ESCITALOPRAM [Interacting]
     Indication: DEPRESSION
     Dosage: 10 MG/DAY
  2. LOSARTAN POTASSIUM [Concomitant]
     Indication: HYPERTENSION
     Dosage: 25 MG/ DAY
  3. AMLODIPINE [Concomitant]
     Indication: HYPERTENSION
     Dosage: 2.5 MG/ DAY
  4. CLONAZEPAM [Suspect]
     Dosage: 0.5 MG/ DAY

REACTIONS (2)
  - HYPOMANIA [None]
  - DRUG INTERACTION [None]
